FAERS Safety Report 17824984 (Version 1)
Quarter: 2020Q2

REPORT INFORMATION
  Report Type: Spontaneous
  Country: US (occurrence: US)
  Receive Date: 20200526
  Receipt Date: 20200526
  Transmission Date: 20200714
  Serious: Yes (Other)
  Sender: FDA-Public Use
  Company Number: None

PATIENT
  Age: 51 Year
  Sex: Male
  Weight: 73.35 kg

DRUGS (6)
  1. REMDESIVIR. [Suspect]
     Active Substance: REMDESIVIR
     Indication: COVID-19
     Route: 041
     Dates: start: 20200522, end: 20200526
  2. PANTOPRAZOLE 40MG PO QDAY [Concomitant]
     Dates: start: 20200522
  3. ASPIRIN 81MG EC [Concomitant]
     Dates: start: 20200522
  4. ENOXAPARIN 40MG SC BID [Concomitant]
     Dates: start: 20200522
  5. TOCILIZUMAB. [Concomitant]
     Active Substance: TOCILIZUMAB
     Dates: start: 20200523, end: 20200524
  6. ACETAMINOPHEN 325 MG [Concomitant]
     Active Substance: ACETAMINOPHEN
     Dates: start: 20200522, end: 20200522

REACTIONS (2)
  - Hepatic enzyme increased [None]
  - Therapy interrupted [None]

NARRATIVE: CASE EVENT DATE: 20200526
